FAERS Safety Report 7455688-8 (Version None)
Quarter: 2011Q2

REPORT INFORMATION
  Report Type: 
  Country: None (occurrence: None)
  Receive Date: 20110503
  Receipt Date: 20110419
  Transmission Date: 20111010
  Serious: Yes (Other)
  Sender: FDA-Public Use
  Company Number: BE-B.I. PHARMACEUTICALS,INC./RIDGEFIELD-2011-DE-02589GD

PATIENT
  Age: 72 Year
  Sex: Male

DRUGS (7)
  1. ASPIRIN [Suspect]
  2. VALPROIC ACID [Concomitant]
     Indication: PARTIAL SEIZURES
  3. SPIRONOLACTONE [Concomitant]
  4. ATENOLOL [Concomitant]
  5. ATORVASTATIN [Concomitant]
  6. DIPIRIDAMOL [Suspect]
  7. ALTIZIDE [Concomitant]

REACTIONS (4)
  - CEREBRAL HAEMORRHAGE [None]
  - COGNITIVE DISORDER [None]
  - SUBARACHNOID HAEMORRHAGE [None]
  - SUPERFICIAL SIDEROSIS OF CENTRAL NERVOUS SYSTEM [None]
